FAERS Safety Report 15811526 (Version 3)
Quarter: 2020Q1

REPORT INFORMATION
  Report Type: Report from Study
  Country: DE (occurrence: DE)
  Receive Date: 20190111
  Receipt Date: 20200206
  Transmission Date: 20200409
  Serious: Yes (Hospitalization)
  Sender: FDA-Public Use
  Company Number: DE-TAKEDA-2019TUS000863

PATIENT
  Age: 37 Year
  Sex: Male
  Weight: 126 kg

DRUGS (8)
  1. SALBUTAMOL [Concomitant]
     Active Substance: ALBUTEROL
     Dosage: UNK
     Route: 065
  2. NALOXONE [Concomitant]
     Active Substance: NALOXONE
     Dosage: 14.4 MG, UNK
     Route: 048
  3. LACOSAMIDE. [Concomitant]
     Active Substance: LACOSAMIDE
     Indication: EPILEPSY
     Dosage: 100 MG, UNK
     Route: 048
  4. SALBUTAMOL [Concomitant]
     Active Substance: ALBUTEROL
     Dosage: UNK
     Route: 065
  5. BRIGATINIB [Suspect]
     Active Substance: BRIGATINIB
     Indication: ADENOCARCINOMA
     Dosage: 540 MILLIGRAM, QD
     Route: 048
     Dates: start: 20181115, end: 20181231
  6. PANTOZOL [Concomitant]
     Active Substance: PANTOPRAZOLE SODIUM
     Indication: PROPHYLAXIS
     Dosage: 40 MG, QD
     Route: 048
  7. TILIDINE [Concomitant]
     Active Substance: TILIDINE
     Dosage: 176.4 MG, UNK
     Route: 048
  8. BRIGATINIB [Suspect]
     Active Substance: BRIGATINIB
     Dosage: 720 MILLIGRAM, QD
     Route: 048
     Dates: start: 20190101, end: 20190103

REACTIONS (4)
  - Accidental overdose [Recovered/Resolved]
  - Hypertension [Recovered/Resolved]
  - Nausea [Recovered/Resolved]
  - Vomiting [Recovered/Resolved]

NARRATIVE: CASE EVENT DATE: 20181225
